FAERS Safety Report 17095862 (Version 3)
Quarter: 2020Q1

REPORT INFORMATION
  Report Type: Spontaneous
  Country: JP (occurrence: JP)
  Receive Date: 20191201
  Receipt Date: 20200103
  Transmission Date: 20200409
  Serious: Yes (Death, Other)
  Sender: FDA-Public Use
  Company Number: JP-ROCHE-2485091

PATIENT
  Age: 64 Year
  Sex: Female

DRUGS (4)
  1. AVASTIN [Suspect]
     Active Substance: BEVACIZUMAB
     Indication: APPENDIX CANCER
     Dosage: DOSAGE IS UNCERTAIN.
     Route: 041
  2. TEGAFUR,GIMERACIL AND OTERACIL POTASSIUM [Concomitant]
     Active Substance: GIMERACIL\OTERACIL\TEGAFUR
     Indication: APPENDIX CANCER
     Dosage: DOSAGE IS UNCERTAIN.
     Route: 048
  3. XELODA [Suspect]
     Active Substance: CAPECITABINE
     Indication: APPENDIX CANCER
     Route: 048
  4. IRINOTECAN HYDROCHLORIDE. [Concomitant]
     Active Substance: IRINOTECAN HYDROCHLORIDE
     Indication: APPENDIX CANCER
     Dosage: DOSAGE IS UNCERTAIN.
     Route: 041

REACTIONS (5)
  - Intentional product use issue [Unknown]
  - Diarrhoea [Unknown]
  - Bone marrow failure [Unknown]
  - Appendix cancer [Fatal]
  - Off label use [Unknown]
